FAERS Safety Report 9044897 (Version 1)
Quarter: 2013Q1

REPORT INFORMATION
  Report Type: Report from Study
  Country: JP (occurrence: JP)
  Receive Date: 20130130
  Receipt Date: 20130130
  Transmission Date: 20140127
  Serious: Yes (Other)
  Sender: FDA-Public Use
  Company Number: JP-GLAXOSMITHKLINE-B0859908A

PATIENT
  Age: 53 None
  Sex: Female
  Weight: 64 kg

DRUGS (2)
  1. TYKERB [Suspect]
     Indication: BREAST CANCER
     Route: 048
     Dates: start: 20091002, end: 20091003
  2. XELODA [Concomitant]
     Route: 048
     Dates: start: 20091002, end: 20091003

REACTIONS (3)
  - Duodenal ulcer [Recovering/Resolving]
  - Vomiting [Recovering/Resolving]
  - Nausea [Recovering/Resolving]
